FAERS Safety Report 4425811-8 (Version None)
Quarter: 2004Q3

REPORT INFORMATION
  Report Type: 
  Country: None (occurrence: None)
  Receive Date: 20040810
  Receipt Date: 20040728
  Transmission Date: 20050211
  Serious: Yes (Hospitalization)
  Sender: FDA-Public Use
  Company Number: 2004045238

PATIENT
  Age: 45 Year
  Sex: Female

DRUGS (1)
  1. VIAGRA [Suspect]
     Indication: PULMONARY HYPERTENSION
     Dosage: 100 MG (50 MG, 2 IN 1 D), ORAL
     Route: 048

REACTIONS (1)
  - TREATMENT NONCOMPLIANCE [None]
